FAERS Safety Report 21995085 (Version 1)
Quarter: 2023Q1

REPORT INFORMATION
  Report Type: Report from Study
  Country: US (occurrence: US)
  Receive Date: 20230215
  Receipt Date: 20230215
  Transmission Date: 20230417
  Serious: Yes (Other)
  Sender: FDA-Public Use
  Company Number: US-GILEAD-2023-0616830

PATIENT
  Age: 76 Year
  Sex: Female

DRUGS (17)
  1. AZTREONAM LYSINE [Suspect]
     Active Substance: AZTREONAM LYSINE
     Indication: Cystic fibrosis
     Dosage: 75MG. VIA NEBULIZER EVERY 8 HRS FOR 28 DAYS ON AND 28 DAYS OFF.
     Route: 065
     Dates: start: 20150408
  2. CLOTRIMAZOLE [Concomitant]
     Active Substance: CLOTRIMAZOLE
  3. COENZYME Q10 [Concomitant]
     Active Substance: DIETARY SUPPLEMENT\UBIDECARENONE
  4. GARLIC NATURAL [Concomitant]
  5. VITAMIN C [Concomitant]
     Active Substance: ASCORBIC ACID
  6. FLAX SEEDS [Concomitant]
     Active Substance: FLAX SEEDS
  7. ROYAL JELLY [Concomitant]
     Active Substance: ROYAL JELLY
  8. MAGNESIUM [Concomitant]
     Active Substance: MAGNESIUM
  9. FLUTICASONE FUROATE\SALMETEROL XINAFOATE [Concomitant]
     Active Substance: FLUTICASONE FUROATE\SALMETEROL XINAFOATE
  10. PULMOZYME [Concomitant]
     Active Substance: DORNASE ALFA
  11. CREON [Concomitant]
     Active Substance: PANCRELIPASE AMYLASE\PANCRELIPASE LIPASE\PANCRELIPASE PROTEASE
  12. ADVAIR HFA [Concomitant]
     Active Substance: FLUTICASONE PROPIONATE\SALMETEROL XINAFOATE
  13. FUROSEMIDE [Concomitant]
     Active Substance: FUROSEMIDE
  14. OMEPRAZOLE [Concomitant]
     Active Substance: OMEPRAZOLE
  15. ALBUTEROL [Concomitant]
     Active Substance: ALBUTEROL
  16. TOBRAMYCIN [Concomitant]
     Active Substance: TOBRAMYCIN
  17. AMOXA [AMOXICILLIN TRIHYDRATE] [Concomitant]

REACTIONS (2)
  - Respiratory tract haemorrhage [Unknown]
  - Respiratory disorder [Unknown]
